FAERS Safety Report 17866999 (Version 2)
Quarter: 2020Q2

REPORT INFORMATION
  Report Type: Report from Study
  Country: US (occurrence: US)
  Receive Date: 20200605
  Receipt Date: 20200609
  Transmission Date: 20200714
  Serious: Yes (Hospitalization)
  Sender: FDA-Public Use
  Company Number: US-BAUSCH-BL-2020-016337

PATIENT
  Age: 77 Year
  Sex: Male

DRUGS (2)
  1. XIFAXAN [Suspect]
     Active Substance: RIFAXIMIN
     Indication: HEPATIC ENCEPHALOPATHY
     Route: 065
     Dates: start: 201705
  2. XIFAXAN [Suspect]
     Active Substance: RIFAXIMIN
     Dosage: RESTART DATE
     Route: 065

REACTIONS (2)
  - Proctitis [Not Recovered/Not Resolved]
  - Therapy interrupted [Unknown]
